FAERS Safety Report 21420524 (Version 4)
Quarter: 2024Q3

REPORT INFORMATION
  Report Type: Report from Study
  Country: US (occurrence: US)
  Receive Date: 20221007
  Receipt Date: 20240808
  Transmission Date: 20241017
  Serious: Yes (Other)
  Sender: ABBVIE
  Company Number: US-ABBVIE-4141614

PATIENT
  Sex: Male

DRUGS (1)
  1. IMBRUVICA [Suspect]
     Active Substance: IBRUTINIB
     Indication: Product used for unknown indication
     Route: 048
     Dates: start: 202104

REACTIONS (8)
  - Blood loss anaemia [Recovered/Resolved]
  - Sinusitis [Recovered/Resolved]
  - Prostate cancer [Not Recovered/Not Resolved]
  - Prostatic specific antigen increased [Unknown]
  - Haemorrhage [Recovering/Resolving]
  - Night sweats [Recovering/Resolving]
  - Irritable bowel syndrome [Recovering/Resolving]
  - Pain [Recovering/Resolving]
